FAERS Safety Report 15152871 (Version 1)
Quarter: 2018Q3

REPORT INFORMATION
  Report Type: Spontaneous
  Country: ES (occurrence: ES)
  Receive Date: 20180717
  Receipt Date: 20180717
  Transmission Date: 20181010
  Serious: Yes (Other)
  Sender: FDA-Public Use
  Company Number: ES-AMGEN-ESPSP2018094867

PATIENT
  Age: 47 Year
  Sex: Female

DRUGS (9)
  1. DEXA [Concomitant]
     Dosage: 20 MG, QWK
  2. NPLATE [Suspect]
     Active Substance: ROMIPLOSTIM
     Dosage: 350 MUG (5/KG)
     Route: 065
     Dates: start: 20160721
  3. NPLATE [Suspect]
     Active Substance: ROMIPLOSTIM
     Dosage: 500 MUG (7/KG)
     Route: 065
     Dates: start: 20160727
  4. IMMUNOGLOBULIN I.V [Concomitant]
     Active Substance: HUMAN IMMUNOGLOBULIN G
     Route: 042
  5. MYCOPHENOLATE MOFETIL. [Concomitant]
     Active Substance: MYCOPHENOLATE MOFETIL
  6. RITUXIMAB. [Concomitant]
     Active Substance: RITUXIMAB
  7. ALPROSTADIL. [Concomitant]
     Active Substance: ALPROSTADIL
     Dosage: UNK
     Dates: start: 201611
  8. HEPARIN [Concomitant]
     Active Substance: HEPARIN SODIUM
  9. NPLATE [Suspect]
     Active Substance: ROMIPLOSTIM
     Indication: PRODUCT USED FOR UNKNOWN INDICATION
     Dosage: 250 MUG (3.5/KG)
     Route: 065
     Dates: start: 20160714

REACTIONS (4)
  - Splenectomy [Unknown]
  - Ischaemia [Unknown]
  - Mucocutaneous haemorrhage [Unknown]
  - Epistaxis [Unknown]

NARRATIVE: CASE EVENT DATE: 20160825
